FAERS Safety Report 9119783 (Version 1)
Quarter: 2013Q1

REPORT INFORMATION
  Report Type: Spontaneous
  Country: FR (occurrence: FR)
  Receive Date: 20130226
  Receipt Date: 20130226
  Transmission Date: 20140127
  Serious: Yes (Life-Threatening, Hospitalization)
  Sender: FDA-Public Use
  Company Number: FR-PFIZER INC-2013066063

PATIENT
  Age: 46 Year
  Sex: Male

DRUGS (7)
  1. TAZOCILLINE [Suspect]
     Dosage: UNK
     Route: 042
     Dates: start: 20130106, end: 20130108
  2. GLOBULINES ANTILYMPHOCYTAIRES FRESENIUS [Suspect]
     Indication: STEM CELL TRANSPLANT
     Dosage: 20 MG/KG, 1X/DAY
     Route: 042
     Dates: start: 20130105, end: 20130106
  3. AMIKACIN [Suspect]
     Dosage: 1 DF, SINGLE
     Route: 042
     Dates: start: 20130105, end: 20130105
  4. BUSULFAN [Concomitant]
     Dosage: UNK
  5. ENDOXAN [Concomitant]
     Dosage: UNK
  6. METHYLPREDNISOLONE [Concomitant]
  7. UROMITEXAN [Concomitant]

REACTIONS (5)
  - Disseminated intravascular coagulation [Recovered/Resolved]
  - Pyrexia [Recovered/Resolved]
  - Renal failure acute [Not Recovered/Not Resolved]
  - Circulatory collapse [Recovered/Resolved]
  - Hypersensitivity [Recovered/Resolved]
